FAERS Safety Report 17746993 (Version 1)
Quarter: 2020Q2

REPORT INFORMATION
  Report Type: Spontaneous
  Country: FR (occurrence: FR)
  Receive Date: 20200505
  Receipt Date: 20200505
  Transmission Date: 20200714
  Serious: Yes (Death, Life-Threatening, Hospitalization, Other)
  Sender: FDA-Public Use
  Company Number: FR-VELOXIS PHARMACEUTICALS-2020VELFR-000402

PATIENT

DRUGS (3)
  1. ENVARSUS XR [Suspect]
     Active Substance: TACROLIMUS
     Indication: PROPHYLAXIS AGAINST GRAFT VERSUS HOST DISEASE
     Dosage: UNKNOWN DOSE
     Route: 048
     Dates: start: 20190723, end: 20191015
  2. DEFITELIO [Suspect]
     Active Substance: DEFIBROTIDE SODIUM
     Indication: VENOOCCLUSIVE LIVER DISEASE
     Dosage: 25 MILLIGRAM/KILOGRAM/DAY
     Route: 042
     Dates: start: 20190730, end: 20190808
  3. CYCLOSPORIN [Suspect]
     Active Substance: CYCLOSPORINE
     Indication: PROPHYLAXIS AGAINST GRAFT VERSUS HOST DISEASE
     Dosage: 5 MILLIGRAM/KILOGRAM/DAY
     Route: 042
     Dates: start: 20190723, end: 20190810

REACTIONS (23)
  - Hypernatraemia [Fatal]
  - Pulmonary imaging procedure abnormal [Fatal]
  - Hyperglycaemia [Fatal]
  - Oesophagitis [Fatal]
  - Bradycardia [Fatal]
  - Adenovirus infection [Fatal]
  - Pulmonary fibrosis [Fatal]
  - Cytomegalovirus infection [Fatal]
  - Melaena [Fatal]
  - Pulmonary toxicity [Fatal]
  - Off label use [Fatal]
  - Thrombocytopenia [Fatal]
  - Tachycardia [Fatal]
  - Posterior reversible encephalopathy syndrome [Fatal]
  - Urinary tract candidiasis [Fatal]
  - Diabetes mellitus [Fatal]
  - Protein-losing gastroenteropathy [Fatal]
  - Pyrexia [Fatal]
  - Hypertension [Fatal]
  - Acute respiratory distress syndrome [Fatal]
  - Acute graft versus host disease in skin [Fatal]
  - Graft versus host disease in gastrointestinal tract [Fatal]
  - Off label use [Unknown]

NARRATIVE: CASE EVENT DATE: 20190730
